FAERS Safety Report 7647652-0 (Version None)
Quarter: 2011Q3

REPORT INFORMATION
  Report Type: 
  Country: None (occurrence: None)
  Receive Date: 20110801
  Receipt Date: 20110801
  Transmission Date: 20111222
  Serious: Yes (Hospitalization)
  Sender: FDA-Public Use
  Company Number: None

PATIENT
  Age: 63 Year
  Sex: Male
  Weight: 142.5 kg

DRUGS (6)
  1. ZOCOR [Concomitant]
  2. AMLODIPINE [Concomitant]
  3. LIRAGLUTIDE [Suspect]
     Indication: TYPE 2 DIABETES MELLITUS
     Route: 058
  4. LISINOPRIL [Concomitant]
  5. CLOPIOGREL [Concomitant]
  6. METHYLPHENIDATE [Concomitant]

REACTIONS (1)
  - PANCREATITIS [None]
